FAERS Safety Report 26192494 (Version 1)
Quarter: 2025Q4

REPORT INFORMATION
  Report Type: Other
  Country: US (occurrence: US)
  Receive Date: 20251223
  Receipt Date: 20251223
  Transmission Date: 20260118
  Serious: Yes (Other)
  Sender: ARGENX BVBA
  Company Number: US-ARGENX-2025-ARGX-US005857

PATIENT

DRUGS (9)
  1. MYCOPHENOLATE MOFETIL [Suspect]
     Active Substance: MYCOPHENOLATE MOFETIL
     Indication: Myasthenia gravis
     Dosage: UNK
     Route: 065
  2. PRIVIGEN [Suspect]
     Active Substance: HUMAN IMMUNOGLOBULIN G
     Dosage: 35 MG, DAILY 2 DAYS ONCE A MONTH PER NOV-2024
     Route: 042
     Dates: start: 202411
  3. PRIVIGEN [Suspect]
     Active Substance: HUMAN IMMUNOGLOBULIN G
     Indication: Myasthenia gravis
     Dosage: 40 MG
     Route: 042
     Dates: start: 2012
  4. PRIVIGEN [Suspect]
     Active Substance: HUMAN IMMUNOGLOBULIN G
     Dosage: 50 MG
     Route: 042
  5. PRIVIGEN [Suspect]
     Active Substance: HUMAN IMMUNOGLOBULIN G
     Dosage: 60 G
     Route: 065
  6. PRIVIGEN [Suspect]
     Active Substance: HUMAN IMMUNOGLOBULIN G
     Dosage: 60 MG
     Route: 042
  7. PRIVIGEN [Suspect]
     Active Substance: HUMAN IMMUNOGLOBULIN G
     Dosage: 0.4 PER DOSE
     Route: 065
  8. PYRIDOSTIGMINE BROMIDE [Suspect]
     Active Substance: PYRIDOSTIGMINE BROMIDE
     Indication: Myasthenia gravis
     Dosage: UNK
     Route: 065
  9. VYVGART [Suspect]
     Active Substance: EFGARTIGIMOD ALFA-FCAB
     Indication: Myasthenia gravis
     Dosage: UNK
     Route: 042
     Dates: start: 202401

REACTIONS (37)
  - Myasthenia gravis [Unknown]
  - Myasthenia gravis [Unknown]
  - Pulmonary congestion [Recovering/Resolving]
  - Asthma [Not Recovered/Not Resolved]
  - Nasal congestion [Not Recovered/Not Resolved]
  - Sluggishness [Unknown]
  - Nerve injury [Unknown]
  - Tremor [Unknown]
  - Seasonal allergy [Unknown]
  - Diarrhoea [Unknown]
  - Diplopia [Unknown]
  - Cough [Recovering/Resolving]
  - Vein disorder [Unknown]
  - Asthenia [Unknown]
  - Sinus congestion [Unknown]
  - Somnolence [Unknown]
  - Pain [Unknown]
  - Burning sensation [Unknown]
  - Fall [Unknown]
  - Oropharyngeal pain [Unknown]
  - Speech disorder [Unknown]
  - Illness [Unknown]
  - Dysphagia [Unknown]
  - Muscular weakness [Unknown]
  - Neck pain [Unknown]
  - Fatigue [Unknown]
  - Nausea [Unknown]
  - Pruritus [Unknown]
  - Nasopharyngitis [Recovered/Resolved]
  - Herpes zoster [Unknown]
  - Headache [Unknown]
  - Bronchitis [Unknown]
  - Rash [Unknown]
  - Drug eruption [Unknown]
  - Influenza like illness [Unknown]
  - Therapy cessation [Unknown]
  - Therapy change [Unknown]

NARRATIVE: CASE EVENT DATE: 20180101
